FAERS Safety Report 8170278 (Version 6)
Quarter: 2023Q2

REPORT INFORMATION
  Report Type: Spontaneous
  Country: GB (occurrence: GB)
  Receive Date: 20110922
  Receipt Date: 20230627
  Transmission Date: 20230721
  Serious: Yes (Life-Threatening, Hospitalization, Disabling, Other)
  Sender: FDA-Public Use
  Company Number: None

PATIENT
  Age: 30 Year
  Sex: Female
  Weight: 63.5 kg

DRUGS (32)
  1. CODEINE [Suspect]
     Active Substance: CODEINE
     Indication: Analgesic therapy
     Route: 048
     Dates: start: 20110615, end: 20110723
  2. CODEINE [Suspect]
     Active Substance: CODEINE
     Indication: Analgesic therapy
     Route: 048
     Dates: start: 2002, end: 2002
  3. DIAZEPAM [Suspect]
     Active Substance: DIAZEPAM
     Indication: Muscle spasms
     Dosage: DOSAGE FORM: UNSPECIFIED 4 SEPARATED DOSES
     Route: 065
     Dates: start: 20110725
  4. TRAMADOL [Suspect]
     Active Substance: TRAMADOL
     Indication: Analgesic therapy
     Route: 048
     Dates: start: 20081201, end: 20101210
  5. PAROXETINE [Suspect]
     Active Substance: PAROXETINE
     Indication: Post-traumatic stress disorder
     Dosage: NA
  6. OMEPRAZOLE [Suspect]
     Active Substance: OMEPRAZOLE
     Indication: Dyspepsia
     Dosage: 20MG PER DAY
     Route: 065
     Dates: start: 20110525
  7. DOMPERIDONE [Suspect]
     Active Substance: DOMPERIDONE
     Indication: Product used for unknown indication
     Route: 065
  8. PROCYCLIDINE [Suspect]
     Active Substance: PROCYCLIDINE
     Indication: Extrapyramidal disorder
     Dosage: 5MG THREE TIMES PER DAY 3 SEPARATED DOSES
     Route: 048
     Dates: start: 20110503, end: 20110510
  9. AMITRIPTYLINE [Suspect]
     Active Substance: AMITRIPTYLINE
     Indication: Muscle spasms
     Dosage: 25MG AT NIGHT
     Route: 065
     Dates: start: 20110810
  10. MIRTAZAPINE [Suspect]
     Active Substance: MIRTAZAPINE
     Indication: Depression
     Route: 048
     Dates: start: 20100923, end: 20101108
  11. CLONAZEPAM [Suspect]
     Active Substance: CLONAZEPAM
     Indication: Sedation
     Route: 048
     Dates: start: 20110224, end: 20110410
  12. LORAZEPAM [Suspect]
     Active Substance: LORAZEPAM
     Indication: Sedation
     Dosage: UNKNOWN 4 SEPARATED DOSES
     Route: 048
     Dates: start: 20110523, end: 20110627
  13. LORAZEPAM [Suspect]
     Active Substance: LORAZEPAM
     Indication: Sedation
     Dates: start: 20110202, end: 20110204
  14. LORAZEPAM [Suspect]
     Active Substance: LORAZEPAM
     Indication: Sedation
     Dates: start: 20110224, end: 20110410
  15. QUETIAPINE [Suspect]
     Active Substance: QUETIAPINE
     Indication: Psychotic disorder
     Dosage: UNKNOWN
     Route: 048
     Dates: start: 20110224, end: 20110506
  16. QUETIAPINE [Suspect]
     Active Substance: QUETIAPINE
     Indication: Psychotic disorder
     Dates: start: 19990801, end: 20110706
  17. PAROXETINE HYDROCHLORIDE [Suspect]
     Active Substance: PAROXETINE HYDROCHLORIDE
     Indication: Depression
     Dosage: 20MG THREE TIMES PER DAY 3 SEPARATED DOSES
     Route: 048
     Dates: start: 19990801, end: 20110706
  18. PAROXETINE HYDROCHLORIDE [Suspect]
     Active Substance: PAROXETINE HYDROCHLORIDE
     Indication: Depression
     Dates: start: 1997
  19. PAROXETINE HYDROCHLORIDE [Suspect]
     Active Substance: PAROXETINE HYDROCHLORIDE
     Indication: Depression
     Dates: start: 200812, end: 201012
  20. ACETAMINOPHEN [Concomitant]
     Active Substance: ACETAMINOPHEN
     Indication: H1N1 influenza
  21. AMITRIPTYLINE [Suspect]
     Active Substance: AMITRIPTYLINE
     Indication: Neuralgia
     Dosage: DOSAGE FORM: UNSPECIFIED
     Route: 065
     Dates: start: 20110810
  22. LORAZEPAM [Suspect]
     Active Substance: LORAZEPAM
     Indication: Sedation
     Dosage: DOSAGE FORM: UNSPECIFIED
     Route: 048
     Dates: start: 20110224, end: 20110410
  23. TRAMADOL [Suspect]
     Active Substance: TRAMADOL
     Indication: Analgesic therapy
     Dosage: DOSAGE FORM: UNSPECIFIED, 50-100MG 4 SEPARATED DOSES
     Route: 048
     Dates: start: 20080722
  24. PROCYCLIDINE [Suspect]
     Active Substance: PROCYCLIDINE
     Indication: Extrapyramidal disorder
     Dosage: DOSAGE FORM: UNSPECIFIED
     Route: 048
     Dates: start: 20110503, end: 20110510
  25. DIAZEPAM [Suspect]
     Active Substance: DIAZEPAM
     Indication: Muscle spasms
     Dosage: DOSAGE FORM: UNSPECIFIED
     Route: 065
  26. PAROXETINE [Suspect]
     Active Substance: PAROXETINE
     Indication: Depression
     Dosage: DOSAGE FORM: UNSPECIFIED
     Route: 048
     Dates: start: 19990801, end: 20110706
  27. PAROXETINE [Suspect]
     Active Substance: PAROXETINE
     Indication: Depression
     Dosage: DOSAGE FORM: UNSPECIFIED
     Route: 048
     Dates: start: 201012
  28. PAROXETINE [Suspect]
     Active Substance: PAROXETINE
     Indication: Depression
     Dosage: DOSAGE FORM: UNSPECIFIED
     Route: 048
     Dates: start: 201105, end: 20110706
  29. CODEINE [Suspect]
     Active Substance: CODEINE
     Indication: Serotonin syndrome
     Route: 048
     Dates: start: 2008, end: 2008
  30. PAROXETINE [Suspect]
     Active Substance: PAROXETINE
     Indication: Post-traumatic stress disorder
     Dosage: 20 MG, 3 TIMES PER DAY 3 SEPARATED DOSES
     Route: 048
     Dates: start: 1997, end: 201105
  31. PHOSPHORUS [Suspect]
     Active Substance: PHOSPHORUS
     Dosage: NA
  32. PROCYCLIDINE [Suspect]
     Active Substance: PROCYCLIDINE
     Indication: Oculogyric crisis
     Dosage: 20 MILLIGRAM, QD
     Route: 048
     Dates: start: 20110324, end: 20110506

REACTIONS (10)
  - Drug withdrawal syndrome [Unknown]
  - Extrapyramidal disorder [Unknown]
  - Serotonin syndrome [Not Recovered/Not Resolved]
  - Vomiting [Unknown]
  - Dyskinesia [Unknown]
  - Dystonia [Unknown]
  - Seizure [Unknown]
  - Paraesthesia [Unknown]
  - Paralysis [Unknown]
  - Therapeutic product ineffective [Unknown]

NARRATIVE: CASE EVENT DATE: 20110101
